FAERS Safety Report 4708499-8 (Version None)
Quarter: 2005Q3

REPORT INFORMATION
  Report Type: 
  Country: None (occurrence: None)
  Receive Date: 20050705
  Receipt Date: 20050624
  Transmission Date: 20060218
  Serious: Yes (Hospitalization)
  Sender: FDA-Public Use
  Company Number: HQWYE685324JUN05

PATIENT
  Sex: Female

DRUGS (1)
  1. RIFUN [Suspect]
     Dosage: 40 MG 1X PER 1 DAY ORAL
     Route: 048
     Dates: start: 20050525, end: 20050526

REACTIONS (2)
  - HEPATIC FAILURE [None]
  - HEPATITIS B [None]
